FAERS Safety Report 11383662 (Version 1)
Quarter: 2015Q3

REPORT INFORMATION
  Report Type: Spontaneous
  Country: JP (occurrence: JP)
  Receive Date: 20150814
  Receipt Date: 20150814
  Transmission Date: 20151125
  Serious: Yes (Other)
  Sender: FDA-Public Use
  Company Number: JP-PFIZER INC-2015236375

PATIENT
  Age: 84 Year
  Sex: Female

DRUGS (10)
  1. ATORVASTATIN CALCIUM. [Suspect]
     Active Substance: ATORVASTATIN CALCIUM
     Dosage: UNK
  2. DIART [Suspect]
     Active Substance: AZOSEMIDE
     Dosage: 30 MG, UNK
  3. ANCARON [Suspect]
     Active Substance: AMIODARONE HYDROCHLORIDE
     Dosage: 100 MG, 2X/DAY
     Route: 048
  4. ANCARON [Suspect]
     Active Substance: AMIODARONE HYDROCHLORIDE
     Dosage: 150 MG, DAILY
     Route: 048
  5. ARTIST [Suspect]
     Active Substance: CARVEDILOL
     Dosage: UNK
     Route: 065
  6. PARIET [Suspect]
     Active Substance: RABEPRAZOLE SODIUM
     Dosage: UNK
     Route: 065
  7. LENDORMIN D [Suspect]
     Active Substance: BROTIZOLAM
     Dosage: UNK
  8. SPIRONOLACTONE. [Suspect]
     Active Substance: SPIRONOLACTONE
     Dosage: UNK
  9. WARFARIN [Suspect]
     Active Substance: WARFARIN
     Dosage: UNK
  10. DIART [Suspect]
     Active Substance: AZOSEMIDE
     Dosage: 15 MG, UNK

REACTIONS (3)
  - Electrocardiogram QT prolonged [Unknown]
  - Aspartate aminotransferase increased [Unknown]
  - Alanine aminotransferase increased [Unknown]
